FAERS Safety Report 17406844 (Version 2)
Quarter: 2020Q1

REPORT INFORMATION
  Report Type: Spontaneous
  Country: US (occurrence: US)
  Receive Date: 20200212
  Receipt Date: 20200217
  Transmission Date: 20200409
  Serious: Yes (Other)
  Sender: FDA-Public Use
  Company Number: US-EYEPOINT PHARMACEUTICALS, INC.-US-EYP-20-00010

PATIENT
  Age: 59 Year
  Sex: Female

DRUGS (2)
  1. DEXYCU [Suspect]
     Active Substance: DEXAMETHASONE
     Indication: POST PROCEDURAL INFLAMMATION
     Route: 031
     Dates: start: 20191223
  2. MIOSTAT [Suspect]
     Active Substance: CARBACHOL
     Indication: PRODUCT USED FOR UNKNOWN INDICATION
     Route: 065

REACTIONS (8)
  - Corneal oedema [Recovered/Resolved]
  - Iris adhesions [Unknown]
  - Product residue present [Unknown]
  - Eye colour change [Unknown]
  - Device dislocation [Unknown]
  - Iris atrophy [Unknown]
  - Pupillary deformity [Unknown]
  - Wrong dose [Unknown]
